FAERS Safety Report 7360817-0 (Version None)
Quarter: 2011Q1

REPORT INFORMATION
  Report Type: 
  Country: None (occurrence: None)
  Receive Date: 20110318
  Receipt Date: 20110308
  Transmission Date: 20110831
  Serious: Yes (Other)
  Sender: FDA-Public Use
  Company Number: US-ACTELION-A-NJ2011-46036

PATIENT

DRUGS (13)
  1. NIFEDIPINE [Concomitant]
  2. ASCORBIC ACID [Concomitant]
  3. LISINOPRIL [Concomitant]
  4. VITAMIN D [Concomitant]
  5. ZYRTEC [Concomitant]
  6. DICLOFENAC [Concomitant]
  7. ALBUTEROL SULFATE AND IPRATROPIUM BROMIDE [Concomitant]
  8. ERYTHROMYCIN [Concomitant]
  9. PREVACID [Concomitant]
  10. NASONEX [Concomitant]
  11. SIMVASTATIN [Concomitant]
  12. TRACLEER [Suspect]
     Indication: PULMONARY ARTERIAL HYPERTENSION
     Dosage: 62.5 MG, BID
     Route: 048
     Dates: start: 20110101, end: 20110114
  13. TYLENOL (CAPLET) [Concomitant]

REACTIONS (5)
  - ARTHRALGIA [None]
  - HEADACHE [None]
  - PYREXIA [None]
  - MYALGIA [None]
  - MALAISE [None]
